FAERS Safety Report 4645374-1 (Version None)
Quarter: 2005Q2

REPORT INFORMATION
  Report Type: 
  Country: None (occurrence: None)
  Receive Date: 20050425
  Receipt Date: 20050411
  Transmission Date: 20051028
  Serious: Yes (Death)
  Sender: FDA-Public Use
  Company Number: 2005059698

PATIENT
  Age: 64 Year
  Sex: Female

DRUGS (9)
  1. PREDNISONE [Suspect]
     Indication: ILL-DEFINED DISORDER
     Dosage: ORAL
     Route: 048
  2. IBUPROFEN [Suspect]
     Indication: ILL-DEFINED DISORDER
     Dosage: 600 MG (200 MG, 3 IN 1 D), ORAL
     Route: 048
  3. AMOXICILLIN [Suspect]
     Indication: ILL-DEFINED DISORDER
  4. IPRATROPIUM BROMIDE [Suspect]
     Indication: CHRONIC OBSTRUCTIVE PULMONARY DISEASE
     Dosage: INHALATION
     Route: 055
  5. SALBUTAMOL SULFATE (SALBUTAMOL SULFATE) [Suspect]
     Indication: ILL-DEFINED DISORDER
     Dosage: 1600 MCG (400 MCG,4 IN 1 D)
  6. SERETIDE MITE (FLUTICASONE PROPIONATE, SALMETEROL XINAFOATE) [Suspect]
     Indication: ILL-DEFINED DISORDER
     Dosage: INHALATION
     Route: 055
  7. SALBUTAMOL (SALBUTAMOL) [Concomitant]
  8. AMINOPHYLLIN [Concomitant]
  9. OXYGEN (OXYGEN) [Concomitant]

REACTIONS (2)
  - BRONCHOPNEUMONIA [None]
  - EMPHYSEMA [None]
